FAERS Safety Report 24454691 (Version 2)
Quarter: 2024Q4

REPORT INFORMATION
  Report Type: Report from Study
  Country: UA (occurrence: UA)
  Receive Date: 20241017
  Receipt Date: 20241018
  Transmission Date: 20250115
  Serious: No
  Sender: ROCHE
  Company Number: UA-ROCHE-3465521

PATIENT

DRUGS (2)
  1. RITUXIMAB [Suspect]
     Active Substance: RITUXIMAB
     Indication: Nephrotic syndrome
     Dosage: AT A RATE OF APPROXIMATELY 50 ML/HOUR VIA AN INFUSOMATE PRE-DILUTED WITH 1 MG/ML SALINE
     Route: 042
  2. METHYLPREDNISOLONE [Concomitant]
     Active Substance: METHYLPREDNISOLONE

REACTIONS (2)
  - Blood pressure decreased [Unknown]
  - Tachycardia [Unknown]
